FAERS Safety Report 7358263-9 (Version None)
Quarter: 2011Q1

REPORT INFORMATION
  Report Type: 
  Country: None (occurrence: None)
  Receive Date: 20110307
  Receipt Date: 20100520
  Transmission Date: 20110831
  Serious: No
  Sender: FDA-Public Use
  Company Number: AEUSA201000206

PATIENT
  Age: 63 Year
  Sex: Female
  Weight: 72.5755 kg

DRUGS (1)
  1. PROLASTIN-C [Suspect]
     Indication: ALPHA-1 ANTI-TRYPSIN DEFICIENCY
     Dosage: IV
     Route: 042
     Dates: start: 20100101

REACTIONS (8)
  - UPPER RESPIRATORY TRACT INFECTION [None]
  - INCORRECT DRUG ADMINISTRATION RATE [None]
  - DYSPNOEA [None]
  - PAIN [None]
  - FEELING ABNORMAL [None]
  - INFUSION RELATED REACTION [None]
  - HEADACHE [None]
  - ARTHRALGIA [None]
